FAERS Safety Report 9246362 (Version 2)
Quarter: 2013Q2

REPORT INFORMATION
  Report Type: Spontaneous
  Country: US (occurrence: US)
  Receive Date: 20130422
  Receipt Date: 20130503
  Transmission Date: 20140414
  Serious: No
  Sender: FDA-Public Use
  Company Number: US-PFIZER INC-2013121362

PATIENT
  Sex: Male

DRUGS (3)
  1. LIPITOR [Suspect]
     Dosage: 10 MG, 1X/DAY
  2. ACCUPRIL [Suspect]
     Dosage: UNK
  3. NEURONTIN [Suspect]
     Dosage: UNK
     Dates: end: 2008

REACTIONS (1)
  - No adverse event [Unknown]
